FAERS Safety Report 25017626 (Version 1)
Quarter: 2025Q1

REPORT INFORMATION
  Report Type: Spontaneous
  Country: US (occurrence: None)
  Receive Date: 20250226
  Receipt Date: 20250226
  Transmission Date: 20250408
  Serious: Yes (Life-Threatening, Hospitalization, Disabling, Other)
  Sender: FDA-CTU
  Company Number: None

PATIENT

DRUGS (7)
  1. EQUATE HAIR REGROWTH TREATMENT [Suspect]
     Active Substance: MINOXIDIL
     Indication: Androgenetic alopecia
     Dosage: FREQUENCY : AT BEDTIME;?OTHER ROUTE : ON THE SKIN USING FINGERS ;?
     Route: 050
     Dates: start: 20110501, end: 20240623
  2. Vit. B-Complex [Concomitant]
  3. Alfalfe tabs [Concomitant]
  4. Resveratrol Caps [Concomitant]
  5. Claritin tabs [Concomitant]
  6. VITAMINS [Concomitant]
     Active Substance: VITAMINS
  7. Fiber Blend [Concomitant]

REACTIONS (6)
  - Abnormal behaviour [None]
  - Disorientation [None]
  - Dizziness [None]
  - Restlessness [None]
  - Peripheral swelling [None]
  - Myocardial infarction [None]

NARRATIVE: CASE EVENT DATE: 20240624
